FAERS Safety Report 8491704-2 (Version None)
Quarter: 2012Q3

REPORT INFORMATION
  Report Type: 
  Country: None (occurrence: None)
  Receive Date: 20120706
  Receipt Date: 20120626
  Transmission Date: 20120928
  Serious: Yes (Hospitalization)
  Sender: FDA-Public Use
  Company Number: JP-BRISTOL-MYERS SQUIBB COMPANY-16587578

PATIENT
  Sex: Male
  Weight: 62 kg

DRUGS (10)
  1. FLUOROURACIL [Suspect]
     Indication: COLORECTAL CANCER RECURRENT
     Dosage: 19 CYCLES(500MG),IV BOLUS 19 CYCLES(3340MG),IV DRIP 19TH CYCLE ON 26APR12
     Route: 040
  2. LEUCOVORIN CALCIUM [Suspect]
     Indication: COLORECTAL CANCER RECURRENT
     Dosage: 19TH CYCLE ON 26APR12
     Route: 042
  3. BIO-THREE [Concomitant]
     Indication: COLORECTAL CANCER RECURRENT
     Route: 048
     Dates: start: 20110707
  4. ANTEBATE [Concomitant]
     Indication: ACNE
     Dosage: OINTMENT
     Dates: start: 20110721
  5. LOXOPROFEN [Concomitant]
     Indication: FRACTURE PAIN
     Route: 048
     Dates: start: 20120110
  6. ERBITUX [Suspect]
     Indication: COLORECTAL CANCER RECURRENT
     Dosage: 19TH CYCLE ON 26APR12
     Route: 042
     Dates: start: 20110707
  7. LANSOPRAZOLE [Concomitant]
     Indication: PROPHYLAXIS AGAINST GASTROINTESTINAL ULCER
     Route: 048
     Dates: start: 20120110
  8. HIRUDOID [Concomitant]
     Indication: ACNE
     Dosage: OINTMENT
     Dates: start: 20110707
  9. DEXALTIN [Concomitant]
     Indication: STOMATITIS
     Dosage: OINTMENT
     Dates: start: 20120308
  10. HIRUDOID [Concomitant]
     Indication: DRY SKIN
     Dosage: OINTMENT
     Dates: start: 20110707

REACTIONS (4)
  - STOMATITIS [None]
  - HYPERAMMONAEMIA [None]
  - ACNE [None]
  - DRY SKIN [None]
